FAERS Safety Report 8669890 (Version 2)
Quarter: 2012Q4

REPORT INFORMATION
  Report Type: 
  Country: BR (occurrence: BR)
  Receive Date: 20120718
  Receipt Date: 20120914
  Transmission Date: 20130627
  Serious: Yes (Hospitalization)
  Sender: FDA-Public Use
  Company Number: BR-PFIZER INC-2012170402

PATIENT
  Age: 55 Year
  Sex: Female
  Weight: 70 kg

DRUGS (8)
  1. FRONTAL [Suspect]
     Indication: STRESS
     Dosage: two tablets daily
     Route: 048
     Dates: start: 2008, end: 2011
  2. SERTRALINE [Concomitant]
     Dosage: UNK, daily
     Dates: start: 2007
  3. CLOPIDOGREL [Concomitant]
     Dosage: UNK
  4. DILTIAZEM [Concomitant]
     Dosage: UNK
  5. PANTOPRAZOLE [Concomitant]
     Dosage: UNK
  6. SUSTRATE [Concomitant]
     Dosage: UNK
  7. ATORVASTATIN [Concomitant]
     Dosage: UNK
  8. AAS [Concomitant]
     Dosage: UNK

REACTIONS (2)
  - Infarction [Recovering/Resolving]
  - Chest pain [Recovering/Resolving]
